FAERS Safety Report 16404899 (Version 1)
Quarter: 2019Q2

REPORT INFORMATION
  Report Type: Report from Study
  Country: GB (occurrence: GB)
  Receive Date: 20190607
  Receipt Date: 20190607
  Transmission Date: 20190711
  Serious: Yes (Other)
  Sender: FDA-Public Use
  Company Number: PHHY2019GB128941

PATIENT
  Sex: Male

DRUGS (1)
  1. HYRIMOZ [Suspect]
     Active Substance: ADALIMUMAB-ADAZ
     Indication: COLITIS ULCERATIVE
     Dosage: 0.8 ML, QW2, PRE FILLED PEN
     Route: 065

REACTIONS (4)
  - Malaise [Unknown]
  - Haematochezia [Unknown]
  - Dry throat [Unknown]
  - Rhinorrhoea [Unknown]
